FAERS Safety Report 6946173-8 (Version None)
Quarter: 2010Q3

REPORT INFORMATION
  Report Type: 
  Country: None (occurrence: None)
  Receive Date: 20100827
  Receipt Date: 20100818
  Transmission Date: 20110219
  Serious: Yes (Hospitalization)
  Sender: FDA-Public Use
  Company Number: PHHY2010VE54720

PATIENT
  Sex: Female

DRUGS (3)
  1. ZOLEDRONIC [Suspect]
     Indication: OSTEOPOROSIS
     Dosage: 5 MG PER YEAR
     Route: 042
     Dates: start: 20090423
  2. VITAMINS [Concomitant]
  3. IDEOS [Concomitant]

REACTIONS (3)
  - BRONCHITIS [None]
  - DENGUE FEVER [None]
  - VIRAL INFECTION [None]
